FAERS Safety Report 17690851 (Version 2)
Quarter: 2020Q2

REPORT INFORMATION
  Report Type: Report from Study
  Country: None (occurrence: TW)
  Receive Date: 20200422
  Receipt Date: 20200507
  Transmission Date: 20200714
  Serious: Yes (Other)
  Sender: FDA-Public Use
  Company Number: TW-ABBVIE-20K-153-3369303-00

PATIENT
  Age: 22 Year
  Sex: Male
  Weight: 73.4 kg

DRUGS (2)
  1. MESALAZINE [Concomitant]
     Active Substance: MESALAMINE
     Indication: CROHN^S DISEASE
     Dosage: 2 GRAM
     Route: 048
     Dates: start: 20200111
  2. HUMIRA [Suspect]
     Active Substance: ADALIMUMAB
     Indication: CROHN^S DISEASE
     Route: 058
     Dates: start: 20200111, end: 20200307

REACTIONS (5)
  - Pyrexia [Recovered/Resolved]
  - Large intestine perforation [Recovering/Resolving]
  - Pelvic abscess [Recovering/Resolving]
  - C-reactive protein increased [Recovered/Resolved]
  - Drug ineffective [Recovering/Resolving]

NARRATIVE: CASE EVENT DATE: 20200229
